FAERS Safety Report 20469888 (Version 1)
Quarter: 2022Q1

REPORT INFORMATION
  Report Type: Spontaneous
  Country: US (occurrence: US)
  Receive Date: 20220214
  Receipt Date: 20220214
  Transmission Date: 20220423
  Serious: No
  Sender: FDA-Public Use
  Company Number: US-SLATE RUN PHARMACEUTICALS-22US000895

PATIENT

DRUGS (10)
  1. GUANFACINE HYDROCHLORIDE [Suspect]
     Active Substance: GUANFACINE HYDROCHLORIDE
     Indication: Tourette^s disorder
     Dosage: UNK
  2. ESCITALOPRAM [Concomitant]
     Active Substance: ESCITALOPRAM OXALATE
     Indication: Tourette^s disorder
  3. BENZTROPINE [Concomitant]
     Active Substance: BENZTROPINE
     Indication: Tourette^s disorder
  4. CLONAZEPAM [Concomitant]
     Active Substance: CLONAZEPAM
     Indication: Tourette^s disorder
  5. CLONIDINE [Concomitant]
     Active Substance: CLONIDINE
     Indication: Tourette^s disorder
  6. SERTRALINE [Concomitant]
     Active Substance: SERTRALINE HYDROCHLORIDE
     Indication: Tourette^s disorder
  7. HALOPERIDOL [Concomitant]
     Active Substance: HALOPERIDOL
     Indication: Tourette^s disorder
     Dosage: 1 DOSAGE FORM, SINGLE
  8. RISPERIDONE [Concomitant]
     Active Substance: RISPERIDONE
     Indication: Tourette^s disorder
  9. GUANFACINE [Concomitant]
     Active Substance: GUANFACINE
     Indication: Tourette^s disorder
  10. ARIPIPRAZOLE [Concomitant]
     Active Substance: ARIPIPRAZOLE
     Indication: Tourette^s disorder

REACTIONS (2)
  - Therapeutic product ineffective for unapproved indication [Unknown]
  - Off label use [Unknown]
